FAERS Safety Report 6274609 (Version 18)
Quarter: 2013Q4

REPORT INFORMATION
  Report Type: Spontaneous
  Country: US (occurrence: US)
  Receive Date: 20070329
  Receipt Date: 20131127
  Transmission Date: 20140711
  Serious: Yes (Other)
  Sender: FDA-Public Use
  Company Number: PHEH2007US03361

PATIENT
  Age: 35 Year
  Sex: Female
  Weight: 63.49 kg

DRUGS (14)
  1. ZOMETA [Suspect]
     Route: 042
  2. EFEXOR XR [Concomitant]
     Dates: start: 20070925
  3. EFFEXOR                                 /USA/ [Concomitant]
     Dates: end: 20070924
  4. FEMARA [Concomitant]
  5. LUPRON [Concomitant]
  6. WELLBUTRIN [Concomitant]
  7. VICODIN [Concomitant]
  8. LEXAPRO [Concomitant]
  9. VITAMIN D [Concomitant]
  10. CALCIUM [Concomitant]
  11. AMBIEN [Concomitant]
  12. XELODA [Concomitant]
  13. FASLODEX [Concomitant]
  14. TAMOXIFEN [Concomitant]

REACTIONS (80)
  - Depression [Not Recovered/Not Resolved]
  - Pleural effusion [Recovered/Resolved]
  - Ovarian cyst [Unknown]
  - Atelectasis [Unknown]
  - Osteonecrosis of jaw [Unknown]
  - Sensitivity of teeth [Unknown]
  - Dental caries [Unknown]
  - Tooth disorder [Unknown]
  - Toothache [Unknown]
  - Local swelling [Unknown]
  - Injury [Unknown]
  - Pain [Unknown]
  - Anxiety [Unknown]
  - Decreased interest [Unknown]
  - Malignant neoplasm progression [Unknown]
  - Breast cancer metastatic [Unknown]
  - Metastases to bone [Unknown]
  - Tumour marker increased [Unknown]
  - Pain in extremity [Unknown]
  - Back pain [Unknown]
  - Bone pain [Unknown]
  - Paraneoplastic syndrome [Unknown]
  - Aspiration pleural cavity [Unknown]
  - Lung infiltration [Unknown]
  - Metastatic lymphoma [Unknown]
  - Spinal osteoarthritis [Unknown]
  - Intervertebral disc protrusion [Unknown]
  - Hepatic lesion [Unknown]
  - Haemangioma [Unknown]
  - Bone lesion [Unknown]
  - Lymphadenopathy [Unknown]
  - Hiatus hernia [Unknown]
  - Gingival erosion [Unknown]
  - Faeces discoloured [Unknown]
  - Epigastric discomfort [Unknown]
  - Gastritis [Unknown]
  - Suicidal ideation [Unknown]
  - Central nervous system lesion [Unknown]
  - Metastases to central nervous system [Unknown]
  - Headache [Unknown]
  - Epistaxis [Unknown]
  - Alopecia [Unknown]
  - Pollakiuria [Unknown]
  - Nocturia [Unknown]
  - Anaemia [Unknown]
  - Vasogenic cerebral oedema [Unknown]
  - Chronic obstructive pulmonary disease [Unknown]
  - Interstitial lung disease [Unknown]
  - Adnexa uteri mass [Unknown]
  - Ascites [Unknown]
  - Metastases to liver [Unknown]
  - Muscular weakness [Unknown]
  - Osteosclerosis [Unknown]
  - Pancytopenia [Unknown]
  - Thrombocytopenia [Unknown]
  - Scoliosis [Unknown]
  - Bone marrow failure [Unknown]
  - Femur fracture [Unknown]
  - Fall [Unknown]
  - Seroma [Unknown]
  - Exostosis [Unknown]
  - Chondromalacia [Unknown]
  - Metastases to lung [Unknown]
  - Urinary tract infection [Unknown]
  - Gastrooesophageal reflux disease [Unknown]
  - Metastases to spine [Unknown]
  - Palmar-plantar erythrodysaesthesia syndrome [Unknown]
  - Vision blurred [Unknown]
  - Pathological fracture [Unknown]
  - Spinal deformity [Unknown]
  - Compression fracture [Unknown]
  - Lumbar radiculopathy [Unknown]
  - Nerve root compression [Unknown]
  - Wound [Unknown]
  - Pelvic pain [Unknown]
  - Vertebral foraminal stenosis [Unknown]
  - Intervertebral disc degeneration [Unknown]
  - Spinal disorder [Unknown]
  - Cervical radiculopathy [Unknown]
  - Musculoskeletal pain [Unknown]
